FAERS Safety Report 7152336-1 (Version None)
Quarter: 2010Q4

REPORT INFORMATION
  Report Type: 
  Country: None (occurrence: None)
  Receive Date: 20101209
  Receipt Date: 20101209
  Transmission Date: 20110411
  Serious: No
  Sender: FDA-Public Use
  Company Number: None

PATIENT
  Age: 73 Year
  Sex: Female
  Weight: 52.1637 kg

DRUGS (2)
  1. CEFDINIR [Suspect]
     Indication: EAR INFECTION
     Dosage: 300MG. 2X DAILY MOUTH
     Route: 048
     Dates: start: 20101026, end: 20101102
  2. CEFDINIR [Suspect]
     Indication: SINUSITIS
     Dosage: 300MG. 2X DAILY MOUTH
     Route: 048
     Dates: start: 20101026, end: 20101102

REACTIONS (6)
  - ARTHRALGIA [None]
  - ATRIAL FIBRILLATION [None]
  - BLOOD PRESSURE INCREASED [None]
  - BURNING SENSATION [None]
  - PAIN [None]
  - PRODUCT SUBSTITUTION ISSUE [None]
